FAERS Safety Report 16291671 (Version 2)
Quarter: 2019Q2

REPORT INFORMATION
  Report Type: Spontaneous
  Country: US (occurrence: US)
  Receive Date: 20190509
  Receipt Date: 20190621
  Transmission Date: 20190711
  Serious: No
  Sender: FDA-Public Use
  Company Number: US-AMGEN-USASP2019073133

PATIENT
  Age: 56 Year
  Sex: Female
  Weight: 96.7 kg

DRUGS (1)
  1. NEULASTA [Suspect]
     Active Substance: PEGFILGRASTIM
     Indication: PRODUCT USED FOR UNKNOWN INDICATION
     Dosage: UNK
     Route: 058

REACTIONS (3)
  - Accidental exposure to product [Unknown]
  - Device failure [Unknown]
  - Application site discomfort [Unknown]

NARRATIVE: CASE EVENT DATE: 20190503
